FAERS Safety Report 9647509 (Version 4)
Quarter: 2014Q4

REPORT INFORMATION
  Report Type: Spontaneous
  Country: FR (occurrence: FR)
  Receive Date: 20131028
  Receipt Date: 20141112
  Transmission Date: 20150529
  Serious: Yes (Hospitalization, Other)
  Sender: FDA-Public Use
  Company Number: FR-ASTRAZENECA-2013SE78065

PATIENT
  Age: 82 Year
  Sex: Female

DRUGS (11)
  1. LASILIX FAIBLE [Suspect]
     Active Substance: FUROSEMIDE
     Route: 048
     Dates: end: 20130912
  2. ZANIDIP [Suspect]
     Active Substance: LERCANIDIPINE HYDROCHLORIDE
     Route: 048
     Dates: end: 20130912
  3. CARDENSIEL [Concomitant]
     Active Substance: BISOPROLOL FUMARATE
     Route: 048
     Dates: end: 20130912
  4. CARDENSIEL [Concomitant]
     Active Substance: BISOPROLOL FUMARATE
     Route: 048
  5. CRESTOR [Suspect]
     Active Substance: ROSUVASTATIN CALCIUM
     Route: 048
     Dates: end: 20130912
  6. CORDARONE [Suspect]
     Active Substance: AMIODARONE HYDROCHLORIDE
     Route: 048
     Dates: start: 2007, end: 20130912
  7. KARDEGIC [Suspect]
     Active Substance: ASPIRIN LYSINE
     Route: 048
     Dates: end: 20130912
  8. OMEPRAZOLE. [Suspect]
     Active Substance: OMEPRAZOLE
     Route: 048
     Dates: end: 20130912
  9. FURADANTINE [Suspect]
     Active Substance: NITROFURANTOIN
     Dosage: 50 MG EVERY DAY, 15 DAYS PER MONTH
     Route: 048
     Dates: end: 20130912
  10. KENZEN [Suspect]
     Active Substance: CANDESARTAN
     Indication: PRODUCT USED FOR UNKNOWN INDICATION
     Route: 048
     Dates: end: 20130912
  11. CALCIDOSE VITAMINE D [Suspect]
     Active Substance: CALCIUM\CHOLECALCIFEROL
     Route: 048
     Dates: end: 20130912

REACTIONS (6)
  - Interstitial lung disease [Recovered/Resolved]
  - Therapy cessation [Not Recovered/Not Resolved]
  - Acute respiratory distress syndrome [Unknown]
  - Respiratory alkalosis [Unknown]
  - Hypoalbuminaemia [Unknown]
  - Lung infection [Unknown]

NARRATIVE: CASE EVENT DATE: 2013
